FAERS Safety Report 8976457 (Version 1)
Quarter: 2012Q4

REPORT INFORMATION
  Report Type: Report from Study
  Country: CA (occurrence: CA)
  Receive Date: 20121220
  Receipt Date: 20121220
  Transmission Date: 20130627
  Serious: Yes (Hospitalization, Other)
  Sender: FDA-Public Use
  Company Number: CA-ROCHE-1167318

PATIENT
  Age: 52 Year
  Sex: Male
  Weight: 80 kg

DRUGS (3)
  1. OMALIZUMAB [Suspect]
     Indication: ASTHMA
     Route: 058
     Dates: start: 20060601, end: 20070829
  2. VENTOLIN [Concomitant]
  3. CEFTIN [Concomitant]

REACTIONS (9)
  - Lung disorder [Not Recovered/Not Resolved]
  - Asthma [Recovered/Resolved]
  - Pulmonary congestion [Recovering/Resolving]
  - Sinusitis [Recovered/Resolved]
  - Upper-airway cough syndrome [Not Recovered/Not Resolved]
  - Secretion discharge [Unknown]
  - Rhinorrhoea [Unknown]
  - Cough [Not Recovered/Not Resolved]
  - Drug ineffective [Unknown]
